FAERS Safety Report 23148009 (Version 4)
Quarter: 2024Q1

REPORT INFORMATION
  Report Type: Spontaneous
  Country: US (occurrence: US)
  Receive Date: 20231106
  Receipt Date: 20240310
  Transmission Date: 20240410
  Serious: Yes (Hospitalization)
  Sender: FDA-Public Use
  Company Number: US-BRISTOL-MYERS SQUIBB COMPANY-2023-154457

PATIENT
  Age: 72 Year
  Sex: Female

DRUGS (1)
  1. POMALYST [Suspect]
     Active Substance: POMALIDOMIDE
     Indication: Plasma cell myeloma
     Dosage: DAILY FOR 14 DAY AND 14 DAY OFF
     Route: 048

REACTIONS (7)
  - Localised infection [Unknown]
  - Tachycardia [Unknown]
  - Off label use [Unknown]
  - Nasopharyngitis [Unknown]
  - Rhinitis allergic [Unknown]
  - Swelling [Unknown]
  - Fatigue [Unknown]
